FAERS Safety Report 5858754-3 (Version None)
Quarter: 2008Q3

REPORT INFORMATION
  Report Type: 
  Country: None (occurrence: None)
  Receive Date: 20080826
  Receipt Date: 20080819
  Transmission Date: 20090109
  Serious: Yes (Other)
  Sender: FDA-Public Use
  Company Number: US-ABBOTT-08P-163-0445050-00

PATIENT
  Sex: Female

DRUGS (4)
  1. HUMIRA [Suspect]
     Indication: RHEUMATOID ARTHRITIS
     Route: 058
     Dates: start: 20040701
  2. METHOTREXATE [Concomitant]
     Indication: RHEUMATOID ARTHRITIS
     Route: 058
  3. FOLIC ACID [Concomitant]
     Indication: VITAMIN SUPPLEMENTATION
     Route: 048
  4. LEFLUNOMIDE [Concomitant]
     Indication: RHEUMATOID ARTHRITIS
     Route: 048

REACTIONS (9)
  - ARTHRITIS [None]
  - GALLBLADDER OPERATION [None]
  - LIVER FUNCTION TEST ABNORMAL [None]
  - LOCALISED INFECTION [None]
  - PRECANCEROUS SKIN LESION [None]
  - RASH [None]
  - RASH MACULAR [None]
  - STITCH ABSCESS [None]
  - URTICARIA [None]
